FAERS Safety Report 9882107 (Version 2)
Quarter: 2025Q4

REPORT INFORMATION
  Report Type: Spontaneous
  Country: EU (occurrence: EU)
  Receive Date: 20140207
  Receipt Date: 20251031
  Transmission Date: 20260118
  Serious: Yes (Other)
  Sender: NOVARTIS
  Company Number: PHHY2014NL014754

PATIENT
  Sex: Female

DRUGS (4)
  1. CYCLOSPORINE [Suspect]
     Active Substance: CYCLOSPORINE
     Indication: Foetal exposure during pregnancy
     Dosage: UNK (MATERNAL EXPOSURE DURING PREGNANCY)
     Route: 064
  2. CYCLOSPORINE [Suspect]
     Active Substance: CYCLOSPORINE
     Dosage: UNK (MATERNAL EXPOSURE DURING PREGNANCY : CICLOSPORIN IN THE FIRST TRIMESTER WAS 320 MG/DAY AND WAS
     Route: 064
  3. PREDNISOLONE [Suspect]
     Active Substance: PREDNISOLONE
     Indication: Foetal exposure during pregnancy
     Dosage: UNK (MATERNAL EXPOSURE DURING PREGNANCY: 10 MG)
     Route: 064
  4. AZATHIOPRINE [Suspect]
     Active Substance: AZATHIOPRINE
     Indication: Foetal exposure during pregnancy
     Dosage: UNK (MATERNAL EXPOSURE DURING PREGNANCY : 125 MG)
     Route: 064

REACTIONS (6)
  - Apnoea [Unknown]
  - Lymphocyte count decreased [Unknown]
  - CD4/CD8 ratio increased [Unknown]
  - Low birth weight baby [Unknown]
  - Nasopharyngitis [Unknown]
  - Foetal exposure during pregnancy [Unknown]
